FAERS Safety Report 6437974-3 (Version None)
Quarter: 2009Q4

REPORT INFORMATION
  Report Type: 
  Country: None (occurrence: None)
  Receive Date: 20091112
  Receipt Date: 20081120
  Transmission Date: 20100525
  Serious: No
  Sender: FDA-Public Use
  Company Number: US-ASTRAZENECA-2009UW17204

PATIENT
  Age: 63 Year
  Sex: Female

DRUGS (3)
  1. PRILOSEC OTC [Suspect]
     Dosage: 1 TABLET, 2 /DAY FOR 1 DAY
     Route: 048
     Dates: start: 20081120, end: 20081120
  2. FOMALE [Concomitant]
     Dosage: 2.5 MG, UNK FREQ
     Route: 048
  3. HYDROCHLOROTHIAZIDE [Concomitant]
     Dosage: 25 MG, UNKN FREQ
     Route: 048

REACTIONS (1)
  - ACCIDENTAL EXPOSURE [None]
